FAERS Safety Report 8983922 (Version 1)
Quarter: 2012Q4

REPORT INFORMATION
  Report Type: Spontaneous
  Country: US (occurrence: None)
  Receive Date: 20121218
  Receipt Date: 20121218
  Transmission Date: 20130627
  Serious: Yes (Hospitalization)
  Sender: FDA-Public Use
  Company Number: None

PATIENT
  Age: 41 Year
  Sex: Male
  Weight: 68.4 kg

DRUGS (2)
  1. TAPENTADOL [Suspect]
     Indication: PAIN
     Dosage: 50 mg to 100mg q 4 hrs prn po
     Route: 048
  2. VENLAFAXINE [Suspect]
     Indication: DEPRESSION
     Route: 048

REACTIONS (5)
  - Muscle spasms [None]
  - Agitation [None]
  - Clonus [None]
  - Serotonin syndrome [None]
  - Delirium [None]
